FAERS Safety Report 8822929 (Version 1)
Quarter: 2012Q4

REPORT INFORMATION
  Report Type: 
  Country: DE (occurrence: DE)
  Receive Date: 20121003
  Receipt Date: 20121003
  Transmission Date: 20130627
  Serious: Yes (Other)
  Sender: FDA-Public Use
  Company Number: PHHY2012DE085084

PATIENT
  Age: 80 Year
  Sex: Female

DRUGS (3)
  1. EXFORGE [Suspect]
     Dosage: 1 DF, (160 mg vals and 10 mg amlo)
  2. BISOPROLOL [Concomitant]
     Dosage: 10 mg, QD
  3. ASS [Concomitant]
     Dosage: 350 mg, QD

REACTIONS (5)
  - Transient ischaemic attack [Unknown]
  - Amnesia [Unknown]
  - Atrial fibrillation [Unknown]
  - Heart rate decreased [Unknown]
  - Blood pressure decreased [Unknown]
